FAERS Safety Report 5450176-2 (Version None)
Quarter: 2007Q3

REPORT INFORMATION
  Report Type: 
  Country: None (occurrence: None)
  Receive Date: 20070912
  Receipt Date: 20070831
  Transmission Date: 20080115
  Serious: Yes (Other)
  Sender: FDA-Public Use
  Company Number: PHBS2007BR14619

PATIENT
  Age: 53 Year
  Sex: Female
  Weight: 89 kg

DRUGS (7)
  1. DIOVAN AMLO [Suspect]
     Indication: HYPERTENSION
     Dosage: VALS 160 / AMLO 5 MG/DAY
     Route: 048
  2. INDAPAMIDE [Concomitant]
     Dosage: 1.5 MG, QD
     Route: 048
  3. CRESTOR [Concomitant]
     Indication: BLOOD CHOLESTEROL
     Dosage: 10 MG, QD
     Route: 048
  4. ALPRAZOLAM [Concomitant]
     Indication: ANXIETY
     Dosage: 0.5 MG, QD
     Route: 048
  5. CLONAZEPAM [Concomitant]
     Indication: ANXIETY
     Dosage: 0.5 MG, QD
     Route: 048
  6. PANTOPRAZOLE SODIUM [Concomitant]
     Indication: GASTRITIS
     Dosage: 1 TABLET/DAY
     Route: 048
  7. MOTILIUM [Concomitant]
     Indication: GASTRITIS
     Dosage: 1 TABLET/DAY
     Route: 048

REACTIONS (6)
  - BLOOD PRESSURE INADEQUATELY CONTROLLED [None]
  - DIZZINESS [None]
  - FEELING HOT [None]
  - FOREIGN BODY SENSATION IN EYES [None]
  - HEADACHE [None]
  - HYPERTENSION [None]
